FAERS Safety Report 13699976 (Version 2)
Quarter: 2017Q3

REPORT INFORMATION
  Report Type: Spontaneous
  Country: US (occurrence: US)
  Receive Date: 20170629
  Receipt Date: 20170724
  Transmission Date: 20171127
  Serious: Yes (Hospitalization)
  Sender: FDA-Public Use
  Company Number: US-VANDA PHARMACEUTICALS, INC-2017TASUS001661

PATIENT
  Sex: Female

DRUGS (2)
  1. HETLIOZ [Suspect]
     Active Substance: TASIMELTEON
     Indication: BLINDNESS
     Dosage: 20 MG, DAILY AT BEDTIME
     Route: 048
     Dates: start: 20170511
  2. HETLIOZ [Suspect]
     Active Substance: TASIMELTEON
     Indication: NON-24-HOUR SLEEP-WAKE DISORDER
     Dosage: 20 MG, EVERY DAY AT NIGHT BEFORE BEDTIME
     Route: 048
     Dates: start: 20170510

REACTIONS (2)
  - Vomiting [Unknown]
  - Headache [Unknown]
